FAERS Safety Report 7397397-X (Version None)
Quarter: 2011Q2

REPORT INFORMATION
  Report Type: 
  Country: None (occurrence: None)
  Receive Date: 20110406
  Receipt Date: 20110404
  Transmission Date: 20111010
  Serious: Yes (Death)
  Sender: FDA-Public Use
  Company Number: DE-ABBOTT-11P-062-0716335-00

PATIENT
  Sex: Male
  Weight: 75 kg

DRUGS (4)
  1. KALETRA [Suspect]
     Indication: HIV INFECTION
     Dosage: 2 TABLETS IN AMS AND 2 TABLETS IN PMS
     Route: 048
     Dates: start: 20080211, end: 20110110
  2. KALETRA [Suspect]
     Indication: HIV INFECTION CDC CATEGORY C3
  3. TRUVADA [Concomitant]
     Indication: HIV INFECTION CDC CATEGORY C3
  4. TRUVADA [Concomitant]
     Indication: HIV INFECTION
     Dosage: 200MG/245 MG OPD
     Route: 048
     Dates: start: 20080211, end: 20110110

REACTIONS (2)
  - HODGKIN'S DISEASE STAGE IV [None]
  - MULTI-ORGAN FAILURE [None]
